FAERS Safety Report 6075189-1 (Version None)
Quarter: 2009Q1

REPORT INFORMATION
  Report Type: 
  Country: None (occurrence: None)
  Receive Date: 20090210
  Receipt Date: 20090130
  Transmission Date: 20090719
  Serious: Yes (Other)
  Sender: FDA-Public Use
  Company Number: CLOF-1000418

PATIENT
  Age: 72 Year
  Sex: Male

DRUGS (1)
  1. CLOLAR [Suspect]
     Indication: ACUTE MYELOID LEUKAEMIA
     Dosage: 35 MG QD;
     Dates: start: 20090128, end: 20090129

REACTIONS (2)
  - BLOOD POTASSIUM INCREASED [None]
  - ELECTROLYTE IMBALANCE [None]
